FAERS Safety Report 18642180 (Version 4)
Quarter: 2021Q1

REPORT INFORMATION
  Report Type: Other
  Country: PL (occurrence: PL)
  Receive Date: 20201221
  Receipt Date: 20210115
  Transmission Date: 20210419
  Serious: Yes (Other)
  Sender: FDA-Public Use
  Company Number: PL-ROCHE-2733688

PATIENT
  Age: 14 Year
  Sex: Female
  Weight: 18 kg

DRUGS (3)
  1. RISDIPLAM. [Suspect]
     Active Substance: RISDIPLAM
     Indication: SPINAL MUSCULAR ATROPHY
     Dosage: 4.5 MG, MEDICINE VOLUME 6 ML?4.4 MG, MEDICINE VOLUME 5.8 ML
     Route: 048
     Dates: start: 20201110
  2. COLISTIN [Concomitant]
     Active Substance: COLISTIN
     Dates: start: 20201218
  3. GENTAMICIN. [Concomitant]
     Active Substance: GENTAMICIN
     Dates: start: 20201206, end: 20201217

REACTIONS (4)
  - Respiratory tract infection [Not Recovered/Not Resolved]
  - Urinary retention [Recovered/Resolved]
  - Device use confusion [Unknown]
  - Tachycardia [Recovered/Resolved]

NARRATIVE: CASE EVENT DATE: 20201206
